FAERS Safety Report 25808198 (Version 1)
Quarter: 2025Q3

REPORT INFORMATION
  Report Type: Spontaneous
  Country: CN (occurrence: CN)
  Receive Date: 20250916
  Receipt Date: 20250916
  Transmission Date: 20251021
  Serious: Yes (Hospitalization, Other)
  Sender: PFIZER
  Company Number: CN-PFIZER INC-PV202500110835

PATIENT
  Age: 48 Year
  Sex: Male
  Weight: 71 kg

DRUGS (3)
  1. LORLATINIB [Suspect]
     Active Substance: LORLATINIB
     Indication: Lung adenocarcinoma
     Dosage: 100 MG, 1X/DAY
     Route: 048
     Dates: start: 20250725, end: 20250824
  2. LORLATINIB [Suspect]
     Active Substance: LORLATINIB
     Indication: Metastases to bone marrow
  3. LORLATINIB [Suspect]
     Active Substance: LORLATINIB
     Indication: Metastases to bone

REACTIONS (6)
  - Dyspnoea [Recovering/Resolving]
  - Oedema [Recovering/Resolving]
  - Nephrotic syndrome [Recovering/Resolving]
  - Pulmonary arterial hypertension [Recovering/Resolving]
  - Protein urine present [Recovering/Resolving]
  - Tachypnoea [Recovering/Resolving]

NARRATIVE: CASE EVENT DATE: 20250101
